FAERS Safety Report 15814892 (Version 1)
Quarter: 2019Q1

REPORT INFORMATION
  Report Type: Spontaneous
  Country: FR (occurrence: FR)
  Receive Date: 20190111
  Receipt Date: 20190111
  Transmission Date: 20190417
  Serious: Yes (Hospitalization, Other)
  Sender: FDA-Public Use
  Company Number: FR-ACCORD-101243

PATIENT
  Age: 78 Year
  Sex: Male
  Weight: 61.1 kg

DRUGS (5)
  1. IRINOTECAN [Interacting]
     Active Substance: IRINOTECAN
     Indication: ADENOCARCINOMA OF COLON
     Route: 042
     Dates: start: 20180223, end: 20180223
  2. LEVOFOLINATE [Interacting]
     Active Substance: LEVOLEUCOVORIN CALCIUM
     Indication: ADENOCARCINOMA OF COLON
     Route: 042
     Dates: start: 20180223, end: 20180223
  3. FLUOROURACIL. [Suspect]
     Active Substance: FLUOROURACIL
     Indication: ADENOCARCINOMA OF COLON
     Route: 042
     Dates: start: 20180223, end: 20180223
  4. METHYLPREDNISOLONE. [Interacting]
     Active Substance: METHYLPREDNISOLONE
     Indication: ADENOCARCINOMA OF COLON
     Route: 042
     Dates: start: 20180223, end: 20180223
  5. AFLIBERCEPT [Interacting]
     Active Substance: AFLIBERCEPT
     Indication: ADENOCARCINOMA OF COLON
     Route: 042
     Dates: start: 20180223, end: 20180223

REACTIONS (4)
  - Lymphopenia [Recovering/Resolving]
  - Thrombocytopenia [Recovered/Resolved]
  - Drug interaction [Unknown]
  - Septic shock [Recovered/Resolved]

NARRATIVE: CASE EVENT DATE: 20180227
